FAERS Safety Report 16688146 (Version 2)
Quarter: 2019Q4

REPORT INFORMATION
  Report Type: Report from Study
  Country: CA (occurrence: CA)
  Receive Date: 20190809
  Receipt Date: 20191230
  Transmission Date: 20200122
  Serious: Yes (Other)
  Sender: FDA-Public Use
  Company Number: CA-JNJFOC-20190808384

PATIENT
  Sex: Female
  Weight: 74.84 kg

DRUGS (1)
  1. REMICADE [Suspect]
     Active Substance: INFLIXIMAB
     Indication: CROHN^S DISEASE
     Route: 042
     Dates: start: 20180626

REACTIONS (7)
  - Nasopharyngitis [Recovering/Resolving]
  - Ocular hyperaemia [Unknown]
  - Skin cancer [Unknown]
  - Malignant melanoma [Recovered/Resolved]
  - Vertigo [Recovering/Resolving]
  - Cervical dysplasia [Unknown]
  - Basal cell carcinoma [Unknown]

NARRATIVE: CASE EVENT DATE: 2019
